FAERS Safety Report 6621956-2 (Version None)
Quarter: 2010Q1

REPORT INFORMATION
  Report Type: 
  Country: None (occurrence: None)
  Receive Date: 20100223
  Receipt Date: 20091230
  Transmission Date: 20100710
  Serious: No
  Sender: FDA-Public Use
  Company Number: 003815

PATIENT
  Sex: Female
  Weight: 48 kg

DRUGS (4)
  1. CIMZIA [Suspect]
     Indication: CROHN'S DISEASE
     Dosage: 400 MG SUBCUTANEOUS
     Route: 058
     Dates: start: 20090901
  2. PENTASA [Concomitant]
  3. PREDNISONE [Concomitant]
  4. ENTOCORT EC [Concomitant]

REACTIONS (7)
  - BUTTERFLY RASH [None]
  - CHEST DISCOMFORT [None]
  - CONTUSION [None]
  - FATIGUE [None]
  - INJECTION SITE NODULE [None]
  - RASH [None]
  - UPPER RESPIRATORY TRACT INFECTION [None]
